FAERS Safety Report 14554318 (Version 1)
Quarter: 2018Q1

REPORT INFORMATION
  Report Type: Spontaneous
  Country: US (occurrence: US)
  Receive Date: 20180217
  Receipt Date: 20180217
  Transmission Date: 20180509
  Serious: Yes (Other)
  Sender: FDA-Public Use
  Company Number: None

PATIENT
  Age: 20 Year
  Sex: Female
  Weight: 91.35 kg

DRUGS (1)
  1. SRONYX [Suspect]
     Active Substance: ETHINYL ESTRADIOL\LEVONORGESTREL
     Indication: CONTRACEPTION
     Route: 048
     Dates: start: 20160120, end: 20170712

REACTIONS (5)
  - Economic problem [None]
  - Emotional distress [None]
  - Malaise [None]
  - Unwanted pregnancy [None]
  - Quality of life decreased [None]

NARRATIVE: CASE EVENT DATE: 20170612
